FAERS Safety Report 8390918-X (Version None)
Quarter: 2012Q2

REPORT INFORMATION
  Report Type: 
  Country: None (occurrence: None)
  Receive Date: 20120529
  Receipt Date: 20120521
  Transmission Date: 20120825
  Serious: Yes (Hospitalization)
  Sender: FDA-Public Use
  Company Number: US-B.I. PHARMACEUTICALS,INC./RIDGEFIELD-2012-BP-11332BP

PATIENT
  Age: 55 Year
  Sex: Female

DRUGS (3)
  1. IMDUR [Concomitant]
  2. PRADAXA [Suspect]
     Indication: ATRIAL FIBRILLATION
     Dosage: 300 MG
     Route: 048
     Dates: start: 20120420, end: 20120520
  3. OMEPRAZOLE [Concomitant]

REACTIONS (1)
  - EPISTAXIS [None]
